FAERS Safety Report 9229036 (Version 3)
Quarter: 2013Q2

REPORT INFORMATION
  Report Type: Spontaneous
  Country: US (occurrence: US)
  Receive Date: 20130412
  Receipt Date: 20130507
  Transmission Date: 20140414
  Serious: Yes (Life-Threatening, Other)
  Sender: FDA-Public Use
  Company Number: CHPA2013US006301

PATIENT
  Age: 70 Year
  Sex: Male

DRUGS (1)
  1. BUCKLEY^S COUGH MIXTURE [Suspect]
     Indication: COUGH
     Dosage: 1 TSP, UNK
     Route: 048

REACTIONS (4)
  - Pneumonia [Recovered/Resolved]
  - Parkinson^s disease [Not Recovered/Not Resolved]
  - Skin cancer [Unknown]
  - Expired drug administered [Unknown]
